FAERS Safety Report 16691911 (Version 2)
Quarter: 2019Q4

REPORT INFORMATION
  Report Type: Report from Study
  Country: CA (occurrence: CA)
  Receive Date: 20190812
  Receipt Date: 20191015
  Transmission Date: 20200122
  Serious: Yes (Hospitalization, Other)
  Sender: FDA-Public Use
  Company Number: CA-MYLANLABS-2019M1072121

PATIENT
  Age: 59 Year
  Sex: Female
  Weight: 54.42 kg

DRUGS (2)
  1. EPIPEN [Suspect]
     Active Substance: EPINEPHRINE
     Indication: NONSPECIFIC REACTION
     Dosage: UNK
     Dates: start: 20190713, end: 20190713
  2. EPIPEN [Suspect]
     Active Substance: EPINEPHRINE
     Dosage: UNK
     Dates: start: 20190718, end: 20190718

REACTIONS (5)
  - Drug ineffective [Not Recovered/Not Resolved]
  - Device failure [Not Recovered/Not Resolved]
  - Injection site pain [Unknown]
  - Burning sensation [Unknown]
  - Product administered at inappropriate site [Unknown]

NARRATIVE: CASE EVENT DATE: 20190713
